FAERS Safety Report 13291502 (Version 1)
Quarter: 2017Q1

REPORT INFORMATION
  Report Type: Spontaneous
  Country: US (occurrence: US)
  Receive Date: 20170302
  Receipt Date: 20170302
  Transmission Date: 20170428
  Serious: No
  Sender: FDA-Public Use
  Company Number: US-PERRIGO-16US021814

PATIENT
  Age: 65 Year
  Sex: Female
  Weight: 61.22 kg

DRUGS (5)
  1. LOPERAMIDE HYDROCHLORIDE. [Suspect]
     Active Substance: LOPERAMIDE HYDROCHLORIDE
     Indication: DIARRHOEA
     Dosage: 4 MG, AFTER FIRST LOOSE STOOL, 2 MG AFTER SUBSEQUENT LOOSE STOOLS, PRN
     Route: 048
     Dates: start: 201608
  2. ASPIRIN                            /00002701/ [Concomitant]
     Active Substance: ASPIRIN
     Indication: ANTICOAGULANT THERAPY
     Dosage: 81 MG, QD
     Route: 048
     Dates: start: 2011
  3. LISINOPRIL. [Concomitant]
     Active Substance: LISINOPRIL
     Indication: HYPERTENSION
     Dosage: 25 MG, UNKNOWN
     Route: 048
     Dates: start: 1996
  4. VITAMIN D                          /00107901/ [Concomitant]
     Active Substance: ERGOCALCIFEROL
     Indication: VITAMIN D DEFICIENCY
     Dosage: 1.25 MG, TWICE WEEKLY
     Route: 048
     Dates: start: 20161030
  5. METOPROLOL. [Concomitant]
     Active Substance: METOPROLOL
     Indication: HEART RATE INCREASED
     Dosage: UNK, NIGHTLY
     Route: 048

REACTIONS (1)
  - Drug effect delayed [Unknown]

NARRATIVE: CASE EVENT DATE: 201608
